FAERS Safety Report 24680329 (Version 1)
Quarter: 2024Q4

REPORT INFORMATION
  Report Type: Report from Study
  Country: CA (occurrence: CA)
  Receive Date: 20241129
  Receipt Date: 20241129
  Transmission Date: 20250115
  Serious: Yes (Other)
  Sender: DAIICHI
  Company Number: CA-AstraZeneca-CH-00751519A

PATIENT
  Sex: Female
  Weight: 119 kg

DRUGS (1)
  1. ENHERTU [Suspect]
     Active Substance: FAM-TRASTUZUMAB DERUXTECAN-NXKI
     Indication: HER2 positive breast cancer
     Dosage: 650 MG, ONCE EVERY 3 WK
     Route: 042
     Dates: start: 20241115

REACTIONS (1)
  - Weight increased [Unknown]
